FAERS Safety Report 16208316 (Version 1)
Quarter: 2019Q2

REPORT INFORMATION
  Report Type: Spontaneous
  Country: US (occurrence: US)
  Receive Date: 20190417
  Receipt Date: 20190417
  Transmission Date: 20190711
  Serious: No
  Sender: FDA-Public Use
  Company Number: US-NOVOPROD-650873

PATIENT
  Age: 65 Year
  Sex: Female

DRUGS (1)
  1. FIASP [Suspect]
     Active Substance: INSULIN ASPART
     Indication: DIABETES MELLITUS
     Dosage: 60 UNITS PER MEAL PLUS A BOLUS OF UNKNOWN UNITS
     Route: 058
     Dates: start: 201811

REACTIONS (3)
  - Wrong technique in product usage process [Unknown]
  - Increased insulin requirement [Not Recovered/Not Resolved]
  - Hyperglycaemia [Not Recovered/Not Resolved]

NARRATIVE: CASE EVENT DATE: 201811
